FAERS Safety Report 4653687-2 (Version None)
Quarter: 2005Q2

REPORT INFORMATION
  Report Type: 
  Country: None (occurrence: None)
  Receive Date: 20050404
  Receipt Date: 20041115
  Transmission Date: 20051028
  Serious: No
  Sender: FDA-Public Use
  Company Number: US_0411108457

PATIENT
  Age: 44 Year
  Sex: Female

DRUGS (3)
  1. CYMBALTA [Suspect]
     Dosage: 30 MG DAY
     Dates: start: 20041104, end: 20041105
  2. REMERON (MIRTAZAPINE ORIFARM) [Concomitant]
  3. LORTAB [Concomitant]

REACTIONS (1)
  - FLUSHING [None]
